FAERS Safety Report 8298502-3 (Version None)
Quarter: 2012Q2

REPORT INFORMATION
  Report Type: 
  Country: None (occurrence: None)
  Receive Date: 20120419
  Receipt Date: 20120119
  Transmission Date: 20120825
  Serious: No
  Sender: FDA-Public Use
  Company Number: US-ABBOTT-12P-163-0895466-00

PATIENT
  Sex: Male

DRUGS (2)
  1. LUPRON [Suspect]
     Dosage: PEDIATRIC FORMULATION
     Dates: start: 20120119
  2. LUPRON [Suspect]
     Indication: PRODUCT USED FOR UNKNOWN INDICATION
     Dosage: ADULT FORMULATION
     Dates: start: 20110201

REACTIONS (2)
  - INCORRECT DRUG DOSAGE FORM ADMINISTERED [None]
  - DRUG DISPENSING ERROR [None]
